FAERS Safety Report 6934851-6 (Version None)
Quarter: 2010Q3

REPORT INFORMATION
  Report Type: 
  Country: None (occurrence: None)
  Receive Date: 20100820
  Receipt Date: 20100806
  Transmission Date: 20110219
  Serious: Yes (Other)
  Sender: FDA-Public Use
  Company Number: PHHY2010TW51967

PATIENT
  Sex: Female

DRUGS (1)
  1. ZOLEDRONIC [Suspect]

REACTIONS (5)
  - HAEMORRHOIDS [None]
  - IMPAIRED HEALING [None]
  - INFLUENZA LIKE ILLNESS [None]
  - PAIN [None]
  - SCAB [None]
